FAERS Safety Report 10072220 (Version 1)
Quarter: 2014Q2

REPORT INFORMATION
  Report Type: Spontaneous
  Country: US (occurrence: US)
  Receive Date: 20140411
  Receipt Date: 20140411
  Transmission Date: 20141212
  Serious: No
  Sender: FDA-Public Use
  Company Number: US-ROXANE LABORATORIES, INC.-2014-RO-00578RO

PATIENT
  Sex: Female

DRUGS (11)
  1. PREDNISONE [Suspect]
     Indication: PNEUMONIA
     Route: 048
     Dates: end: 20140405
  2. METFORMIN [Concomitant]
     Indication: DIABETES MELLITUS
     Dosage: 500 MG
     Route: 065
  3. CHOLESTEROL MEDICATION [Concomitant]
     Indication: BLOOD CHOLESTEROL INCREASED
     Route: 065
  4. SYMBICORT [Concomitant]
     Route: 065
  5. VITAMIN [Concomitant]
     Route: 065
  6. ASPIRIN [Concomitant]
     Route: 065
  7. FISH OIL [Concomitant]
     Route: 065
  8. VITAMIN B [Concomitant]
     Route: 065
  9. OMEPRAZOLE [Concomitant]
     Indication: GASTROOESOPHAGEAL REFLUX DISEASE
     Dosage: 40 MG
     Route: 065
  10. LISINOPRIL [Concomitant]
     Route: 065
  11. STOOL SOFTENER [Concomitant]
     Route: 065

REACTIONS (2)
  - Blood glucose increased [Recovered/Resolved]
  - Weight increased [Unknown]
